FAERS Safety Report 11775082 (Version 7)
Quarter: 2016Q2

REPORT INFORMATION
  Report Type: Report from Study
  Country: JP (occurrence: JP)
  Receive Date: 20151124
  Receipt Date: 20160603
  Transmission Date: 20160815
  Serious: Yes (Death, Life-Threatening, Hospitalization, Other)
  Sender: FDA-Public Use
  Company Number: JP-BRISTOL-MYERS SQUIBB COMPANY-BMS-2015-080553

PATIENT
  Age: 32 Year
  Sex: Female

DRUGS (49)
  1. NIVOLUMAB [Suspect]
     Active Substance: NIVOLUMAB
     Dosage: 2 MG/KG, QD
     Route: 041
     Dates: start: 20141009, end: 20141009
  2. NIVOLUMAB [Suspect]
     Active Substance: NIVOLUMAB
     Dosage: 2 MG/KG, QD
     Route: 041
     Dates: start: 20150128, end: 20150128
  3. NIVOLUMAB [Suspect]
     Active Substance: NIVOLUMAB
     Dosage: 2 MG/KG, QD
     Route: 041
     Dates: start: 20151028, end: 20151028
  4. NIVOLUMAB [Suspect]
     Active Substance: NIVOLUMAB
     Dosage: 2 MG/KG, QD
     Route: 041
     Dates: start: 20151225, end: 20151225
  5. NIVOLUMAB [Suspect]
     Active Substance: NIVOLUMAB
     Dosage: 3 MG/KG, QD
     Route: 041
     Dates: start: 20151005, end: 20151005
  6. NIVOLUMAB [Suspect]
     Active Substance: NIVOLUMAB
     Dosage: 2 MG, QD
     Route: 041
     Dates: start: 20150401, end: 20150503
  7. PREDONINE [Concomitant]
     Active Substance: PREDNISOLONE\PREDNISOLONE ACETATE\PREDNISOLONE SODIUM SUCCINATE
     Dosage: 30 MG, UNK
     Route: 065
     Dates: start: 20150503, end: 20150511
  8. NIVOLUMAB [Suspect]
     Active Substance: NIVOLUMAB
     Dosage: 2 MG/KG, QD
     Route: 041
     Dates: start: 20150218, end: 20150218
  9. NIVOLUMAB [Suspect]
     Active Substance: NIVOLUMAB
     Dosage: 1920 MG, QD
     Route: 041
     Dates: start: 20150422, end: 20150503
  10. NIVOLUMAB [Suspect]
     Active Substance: NIVOLUMAB
     Dosage: UNK
     Route: 041
     Dates: start: 20151225, end: 20151225
  11. EXTERNAL-VEMURAFENIB [Suspect]
     Active Substance: VEMURAFENIB
     Indication: PRODUCT USED FOR UNKNOWN INDICATION
     Dosage: 1920 MG, QD
     Route: 048
     Dates: start: 20150422, end: 20150503
  12. EXTERNAL-VEMURAFENIB [Suspect]
     Active Substance: VEMURAFENIB
     Dosage: 240 UNK, UNK
     Route: 048
     Dates: start: 20150519
  13. PREDONINE [Concomitant]
     Active Substance: PREDNISOLONE\PREDNISOLONE ACETATE\PREDNISOLONE SODIUM SUCCINATE
     Dosage: 10 MG, UNK
     Route: 065
     Dates: start: 20150519, end: 20150519
  14. DABRAFENIB MESILATE [Concomitant]
     Indication: MALIGNANT MELANOMA
     Dosage: 150 MG, UNK
     Route: 065
     Dates: start: 20151013, end: 201601
  15. NIVOLUMAB [Suspect]
     Active Substance: NIVOLUMAB
     Dosage: 2 MG/KG, QD
     Route: 041
     Dates: start: 20150401, end: 20150401
  16. NIVOLUMAB [Suspect]
     Active Substance: NIVOLUMAB
     Dosage: 2 MG/KG, QD
     Route: 041
     Dates: start: 20150525, end: 20150525
  17. NIVOLUMAB [Suspect]
     Active Substance: NIVOLUMAB
     Dosage: 2 MG/KG, QD
     Route: 041
     Dates: start: 20150616, end: 20150616
  18. NIVOLUMAB [Suspect]
     Active Substance: NIVOLUMAB
     Dosage: UNK
     Route: 041
     Dates: start: 20151204, end: 20151204
  19. TRAMETINIB DIMETHYL SULFOXIDE [Suspect]
     Active Substance: TRAMETINIB DIMETHYL SULFOXIDE
     Indication: MALIGNANT MELANOMA
     Dosage: UNK
     Route: 065
     Dates: start: 20151013, end: 201601
  20. PREDONINE [Concomitant]
     Active Substance: PREDNISOLONE\PREDNISOLONE ACETATE\PREDNISOLONE SODIUM SUCCINATE
     Dosage: 20 MG, UNK
     Route: 065
     Dates: start: 20150811, end: 20150813
  21. NIVOLUMAB [Suspect]
     Active Substance: NIVOLUMAB
     Indication: MALIGNANT MELANOMA
     Dosage: 2 MG/KG, QD
     Route: 041
     Dates: start: 20140918, end: 20140918
  22. NIVOLUMAB [Suspect]
     Active Substance: NIVOLUMAB
     Dosage: UNK
     Route: 041
     Dates: start: 20151028, end: 20151028
  23. NIVOLUMAB [Suspect]
     Active Substance: NIVOLUMAB
     Dosage: UNK
     Route: 041
     Dates: start: 20160115, end: 20160115
  24. YERVOY [Suspect]
     Active Substance: IPILIMUMAB
     Dosage: UNK
     Route: 041
     Dates: start: 20160115, end: 20160115
  25. MS CONTIN [Concomitant]
     Active Substance: MORPHINE SULFATE
     Indication: PRODUCT USED FOR UNKNOWN INDICATION
     Route: 065
  26. PREDONINE [Concomitant]
     Active Substance: PREDNISOLONE\PREDNISOLONE ACETATE\PREDNISOLONE SODIUM SUCCINATE
     Dosage: 30 MG, UNK
     Route: 065
     Dates: start: 20150808, end: 20150810
  27. PREDONINE [Concomitant]
     Active Substance: PREDNISOLONE\PREDNISOLONE ACETATE\PREDNISOLONE SODIUM SUCCINATE
     Dosage: 10 MG, UNK
     Route: 065
     Dates: start: 20150814, end: 20150818
  28. PREDONINE [Concomitant]
     Active Substance: PREDNISOLONE\PREDNISOLONE ACETATE\PREDNISOLONE SODIUM SUCCINATE
     Dosage: 20 MG, UNK
     Route: 065
     Dates: start: 20150512, end: 20150522
  29. PREDONINE [Concomitant]
     Active Substance: PREDNISOLONE\PREDNISOLONE ACETATE\PREDNISOLONE SODIUM SUCCINATE
     Dosage: 10 MG, UNK
     Route: 065
     Dates: start: 20150519, end: 20150527
  30. PREDONINE [Concomitant]
     Active Substance: PREDNISOLONE\PREDNISOLONE ACETATE\PREDNISOLONE SODIUM SUCCINATE
     Dosage: 5 MG, UNK
     Route: 065
     Dates: start: 20150528, end: 20150601
  31. NIVOLUMAB [Suspect]
     Active Substance: NIVOLUMAB
     Dosage: 2 MG/KG, QD
     Route: 041
     Dates: start: 20151105, end: 20151105
  32. NIVOLUMAB [Suspect]
     Active Substance: NIVOLUMAB
     Dosage: 2 MG/KG, QD
     Route: 041
     Dates: start: 20141217, end: 20141217
  33. NIVOLUMAB [Suspect]
     Active Substance: NIVOLUMAB
     Dosage: 2 MG/KG, QD
     Route: 041
     Dates: start: 20150311, end: 20150311
  34. NIVOLUMAB [Suspect]
     Active Substance: NIVOLUMAB
     Dosage: 2 MG/KG, QD
     Route: 041
     Dates: start: 20160115, end: 20160115
  35. NIVOLUMAB [Suspect]
     Active Substance: NIVOLUMAB
     Dosage: 240 MG, UNK
     Route: 065
     Dates: start: 20150519
  36. NIVOLUMAB [Suspect]
     Active Substance: NIVOLUMAB
     Dosage: 2 MG/KG, UNK
     Route: 041
     Dates: start: 20150616, end: 20150616
  37. YERVOY [Suspect]
     Active Substance: IPILIMUMAB
     Indication: MALIGNANT MELANOMA
     Dosage: 3 MG/KG, QD
     Route: 041
     Dates: start: 20151005, end: 20151005
  38. NOVAMIN                            /00013304/ [Concomitant]
     Active Substance: PROCHLORPERAZINE MALEATE
     Indication: PRODUCT USED FOR UNKNOWN INDICATION
     Route: 065
  39. OPSO [Concomitant]
     Active Substance: MORPHINE HYDROCHLORIDE
     Indication: PRODUCT USED FOR UNKNOWN INDICATION
     Route: 065
  40. BETAMETHASONE. [Concomitant]
     Active Substance: BETAMETHASONE
     Dosage: 6 MG, UNK
     Route: 065
     Dates: start: 20151102
  41. OXYCONTIN [Concomitant]
     Active Substance: OXYCODONE HYDROCHLORIDE
     Indication: PRODUCT USED FOR UNKNOWN INDICATION
     Route: 065
  42. PREDONINE [Concomitant]
     Active Substance: PREDNISOLONE\PREDNISOLONE ACETATE\PREDNISOLONE SODIUM SUCCINATE
     Indication: PRODUCT USED FOR UNKNOWN INDICATION
     Dosage: 20 MG, UNK
     Route: 065
     Dates: start: 20150804, end: 20150804
  43. PREDONINE [Concomitant]
     Active Substance: PREDNISOLONE\PREDNISOLONE ACETATE\PREDNISOLONE SODIUM SUCCINATE
     Dosage: 20 MG, UNK
     Route: 065
     Dates: start: 20150512, end: 20150518
  44. NIVOLUMAB [Suspect]
     Active Substance: NIVOLUMAB
     Dosage: 2 MG/KG, QD
     Route: 041
     Dates: start: 20150107, end: 20150107
  45. NIVOLUMAB [Suspect]
     Active Substance: NIVOLUMAB
     Dosage: 2 MG/KG, QD
     Route: 041
     Dates: start: 20151204, end: 20151204
  46. PREDONINE [Concomitant]
     Active Substance: PREDNISOLONE\PREDNISOLONE ACETATE\PREDNISOLONE SODIUM SUCCINATE
     Dosage: 5 MG, UNK
     Route: 065
     Dates: start: 20150819, end: 20150823
  47. NIVOLUMAB [Suspect]
     Active Substance: NIVOLUMAB
     Dosage: 2 MG/KG, QD
     Route: 041
     Dates: start: 20141126, end: 20141126
  48. BETAMETHASONE. [Concomitant]
     Active Substance: BETAMETHASONE
     Indication: PRODUCT USED FOR UNKNOWN INDICATION
     Dosage: 3 MG, UNK
     Route: 065
     Dates: end: 20051111
  49. PREDONINE [Concomitant]
     Active Substance: PREDNISOLONE\PREDNISOLONE ACETATE\PREDNISOLONE SODIUM SUCCINATE
     Dosage: 40 MG, UNK
     Route: 065
     Dates: start: 20150805, end: 20150807

REACTIONS (3)
  - Hypersensitivity [Recovered/Resolved]
  - Malignant neoplasm progression [Fatal]
  - Liver disorder [Not Recovered/Not Resolved]

NARRATIVE: CASE EVENT DATE: 20150503
